FAERS Safety Report 7072785-X (Version None)
Quarter: 2010Q4

REPORT INFORMATION
  Report Type: 
  Country: None (occurrence: None)
  Receive Date: 20101029
  Receipt Date: 20100419
  Transmission Date: 20110411
  Serious: No
  Sender: FDA-Public Use
  Company Number: A0850005A

PATIENT
  Age: 59 Year
  Sex: Female

DRUGS (6)
  1. ADVAIR DISKUS 100/50 [Suspect]
     Indication: PRODUCT USED FOR UNKNOWN INDICATION
     Dosage: 1PUFF NINE TIMES PER DAY
     Route: 055
     Dates: start: 20100311
  2. PLAVIX [Concomitant]
  3. FUROSEMIDE [Concomitant]
  4. COMBIVENT [Concomitant]
  5. CRESTOR [Concomitant]
  6. ZYRTEC [Concomitant]

REACTIONS (2)
  - ACCIDENTAL OVERDOSE [None]
  - PRODUCT QUALITY ISSUE [None]
